FAERS Safety Report 7999438-5 (Version None)
Quarter: 2011Q4

REPORT INFORMATION
  Report Type: 
  Country: None (occurrence: None)
  Receive Date: 20111221
  Receipt Date: 20111220
  Transmission Date: 20120403
  Serious: Yes (Other)
  Sender: FDA-Public Use
  Company Number: SE-PFIZER INC-2011308571

PATIENT
  Age: 50 Year
  Sex: Male

DRUGS (2)
  1. VARENICLINE TARTRATE [Suspect]
  2. ALCOHOL [Interacting]
     Route: 048

REACTIONS (2)
  - DISORIENTATION [None]
  - ALCOHOL INTERACTION [None]
